FAERS Safety Report 9373024 (Version 1)
Quarter: 2013Q2

REPORT INFORMATION
  Report Type: Spontaneous
  Country: DE (occurrence: DE)
  Receive Date: 20130627
  Receipt Date: 20130627
  Transmission Date: 20140414
  Serious: Yes (Hospitalization)
  Sender: FDA-Public Use
  Company Number: DE-JNJFOC-20130615627

PATIENT
  Age: 69 Year
  Sex: Male
  Weight: 74 kg

DRUGS (3)
  1. XARELTO [Suspect]
     Indication: THROMBOSIS PROPHYLAXIS
     Route: 048
     Dates: start: 20130405, end: 20130408
  2. XARELTO [Suspect]
     Indication: THROMBOSIS
     Route: 048
     Dates: start: 20130405, end: 20130408
  3. MICARDIS PLUS [Concomitant]
     Indication: HYPERTENSION
     Route: 048
     Dates: start: 20120711, end: 20130408

REACTIONS (2)
  - Haematoma [Recovering/Resolving]
  - Compartment syndrome [Recovering/Resolving]
